FAERS Safety Report 5427310-3 (Version None)
Quarter: 2007Q3

REPORT INFORMATION
  Report Type: 
  Country: None (occurrence: None)
  Receive Date: 20070823
  Receipt Date: 20070620
  Transmission Date: 20080115
  Serious: Yes (Other)
  Sender: FDA-Public Use
  Company Number: 6035557

PATIENT
  Age: 29 Year
  Sex: Female

DRUGS (5)
  1. SERTRALINE [Suspect]
     Indication: ANXIETY
     Dosage: (50 MG)
     Dates: start: 20070522, end: 20070526
  2. SERTRALINE [Suspect]
     Indication: DEPRESSION
     Dosage: (50 MG)
     Dates: start: 20070522, end: 20070526
  3. GINGER (ZINGIBER OFFICINALE RHIZOME) [Concomitant]
  4. GINSENG (GINSENG NOS) [Concomitant]
  5. KALMS (VALERIANA OFFICINALIS EXTRACT, FERULA ASSAFOETIDA, GENTIANA LUT [Concomitant]

REACTIONS (5)
  - CRYING [None]
  - DIARRHOEA [None]
  - NAUSEA [None]
  - SLEEP DISORDER [None]
  - TREMOR [None]
